FAERS Safety Report 23468785 (Version 3)
Quarter: 2024Q2

REPORT INFORMATION
  Report Type: Spontaneous
  Country: US (occurrence: US)
  Receive Date: 20240202
  Receipt Date: 20240519
  Transmission Date: 20240715
  Serious: No
  Sender: FDA-Public Use
  Company Number: US-GSKCCFUS-Case-01915085_AE-106669

PATIENT
  Sex: Female

DRUGS (1)
  1. BENLYSTA [Suspect]
     Active Substance: BELIMUMAB
     Indication: Systemic lupus erythematosus
     Dosage: 200 MG/ML, WE
     Route: 058
     Dates: start: 202307

REACTIONS (2)
  - Urinary tract infection [Recovered/Resolved]
  - Biopsy breast [Unknown]
